FAERS Safety Report 4752753-0 (Version None)
Quarter: 2005Q3

REPORT INFORMATION
  Report Type: 
  Country: None (occurrence: None)
  Receive Date: 20050823
  Receipt Date: 20050527
  Transmission Date: 20060218
  Serious: Yes (Other)
  Sender: FDA-Public Use
  Company Number: 2005054603

PATIENT
  Age: 57 Year
  Sex: Male
  Weight: 115.6672 kg

DRUGS (8)
  1. NORVASC [Suspect]
     Indication: HYPERTENSION
     Dosage: 5 MG (5 MG,DAILY),ORAL;7.5 MG (DAILY),ORAL;5 MG (5 MG,DAILY),ORAL
     Route: 048
     Dates: start: 20050301
  2. NORVASC [Suspect]
     Indication: HYPERTENSION
     Dosage: 5 MG (5 MG,DAILY),ORAL;7.5 MG (DAILY),ORAL;5 MG (5 MG,DAILY),ORAL
     Route: 048
     Dates: start: 20050307
  3. LOTRIMIN [Concomitant]
  4. PATANOL [Concomitant]
  5. BACITRACIN (BACITRACIN) [Concomitant]
  6. ULTRAM [Concomitant]
  7. NORFLEX [Concomitant]
  8. VALIUM [Concomitant]

REACTIONS (8)
  - CONDITION AGGRAVATED [None]
  - CONSTIPATION [None]
  - DRUG INEFFECTIVE [None]
  - DYSPNOEA [None]
  - HEADACHE [None]
  - NASAL CONGESTION [None]
  - NASAL DRYNESS [None]
  - NECK PAIN [None]
